FAERS Safety Report 24560016 (Version 1)
Quarter: 2024Q4

REPORT INFORMATION
  Report Type: Spontaneous
  Country: US (occurrence: None)
  Receive Date: 20241028
  Receipt Date: 20241028
  Transmission Date: 20250114
  Serious: No
  Sender: Public
  Company Number: None

PATIENT
  Age: 77 Year
  Sex: Male

DRUGS (1)
  1. GOCOVRI [Suspect]
     Active Substance: AMANTADINE
     Indication: Parkinson^s disease
     Dosage: FREQUENCY : DAILY;?
     Route: 048
     Dates: start: 20190409

REACTIONS (2)
  - Livedo reticularis [None]
  - Hallucination [None]

NARRATIVE: CASE EVENT DATE: 20241028
